FAERS Safety Report 4772869-2 (Version None)
Quarter: 2005Q3

REPORT INFORMATION
  Report Type: 
  Country: None (occurrence: None)
  Receive Date: 20050916
  Receipt Date: 20050905
  Transmission Date: 20060218
  Serious: Yes (Death)
  Sender: FDA-Public Use
  Company Number: 05SFA0181

PATIENT
  Age: 39 Year
  Sex: Female
  Weight: 57 kg

DRUGS (6)
  1. GLIADEL [Suspect]
     Indication: GLIOMA
     Dosage: 8 WAFER; 7.7 MG/WAFER
     Dates: start: 20050726, end: 20050902
  2. TEMOXOL (EMOZOLOMIDE) [Concomitant]
  3. DECADRON (DEXAMETHASONE) ( 5 MILLIGRAM, TABLETS) [Concomitant]
  4. [10057097- DRUG USE FOR UNKNOWN INDICATION] [Concomitant]
  5. TRILEPTAL (OXCARBAZEPINE) (300 MILLIGRAM, TABELTS) [Concomitant]
  6. [10057097 ] [Concomitant]

REACTIONS (2)
  - BRAIN OEDEMA [None]
  - COMA [None]
